FAERS Safety Report 5452939-6 (Version None)
Quarter: 2007Q3

REPORT INFORMATION
  Report Type: 
  Country: None (occurrence: None)
  Receive Date: 20070914
  Receipt Date: 20070905
  Transmission Date: 20080115
  Serious: Yes (Life-Threatening, Hospitalization, Disabling)
  Sender: FDA-Public Use
  Company Number: AU-ROCHE-461806

PATIENT
  Age: 42 Year
  Sex: Male
  Weight: 80 kg

DRUGS (3)
  1. PEG-INTERFERON A-2A (RO 25-8310) [Suspect]
     Route: 065
     Dates: start: 20060401, end: 20060725
  2. RIBAVIRIN [Suspect]
     Route: 065
     Dates: start: 20060401, end: 20060425
  3. PREDNISOLONE [Concomitant]

REACTIONS (9)
  - ANGIOEDEMA [None]
  - CARDIAC FAILURE [None]
  - DEEP VEIN THROMBOSIS [None]
  - LUPUS NEPHRITIS [None]
  - MOUTH ULCERATION [None]
  - POLYARTHRITIS [None]
  - RASH [None]
  - STREPTOCOCCAL SEPSIS [None]
  - SYSTEMIC LUPUS ERYTHEMATOSUS [None]
